FAERS Safety Report 23430323 (Version 1)
Quarter: 2024Q1

REPORT INFORMATION
  Report Type: Spontaneous
  Country: US (occurrence: US)
  Receive Date: 20240123
  Receipt Date: 20240123
  Transmission Date: 20240409
  Serious: No
  Sender: FDA-Public Use
  Company Number: US-OTSUKA-2023_027224

PATIENT

DRUGS (2)
  1. INQOVI [Suspect]
     Active Substance: CEDAZURIDINE\DECITABINE
     Indication: Product used for unknown indication
     Dosage: 1 DF (35 MG DECITABINE + 100 MG CEDAZURIDINE), QD (DAYS 1 -3) OF 28-DAY CYCLE
     Route: 065
  2. INQOVI [Suspect]
     Active Substance: CEDAZURIDINE\DECITABINE
     Dosage: (35 MG DECITABINE + 100 MG CEDAZURIDINE), UNK
     Route: 065

REACTIONS (1)
  - Inappropriate schedule of product administration [Unknown]
